FAERS Safety Report 8928648 (Version 1)
Quarter: 2012Q4

REPORT INFORMATION
  Report Type: Spontaneous
  Country: US (occurrence: None)
  Receive Date: 20121126
  Receipt Date: 20121126
  Transmission Date: 20130627
  Serious: Yes (Hospitalization)
  Sender: FDA-Public Use
  Company Number: None

PATIENT
  Sex: Female
  Weight: 54.43 kg

DRUGS (1)
  1. RECLAST [Suspect]
     Indication: OSTEOPOROSIS
     Dosage: annual ID
     Route: 023
     Dates: start: 20120927, end: 20120927

REACTIONS (13)
  - Malaise [None]
  - Headache [None]
  - Dehydration [None]
  - Nausea [None]
  - Oedema peripheral [None]
  - Oedema peripheral [None]
  - Musculoskeletal pain [None]
  - Pain in extremity [None]
  - Pain in extremity [None]
  - Hypoaesthesia [None]
  - Joint swelling [None]
  - Hyperaesthesia [None]
  - Gait disturbance [None]
